FAERS Safety Report 5802368-8 (Version None)
Quarter: 2008Q3

REPORT INFORMATION
  Report Type: 
  Country: None (occurrence: None)
  Receive Date: 20080707
  Receipt Date: 20080701
  Transmission Date: 20090109
  Serious: Yes (Death, Other)
  Sender: FDA-Public Use
  Company Number: US-BAXTER-2008BH006951

PATIENT
  Sex: Male

DRUGS (1)
  1. HEPARIN SODIUM INJECTION [Suspect]
     Indication: PREOPERATIVE CARE
     Route: 040
     Dates: start: 20061221, end: 20061221

REACTIONS (3)
  - BLOOD PRESSURE DECREASED [None]
  - COAGULOPATHY [None]
  - DEATH [None]
